FAERS Safety Report 25339909 (Version 1)
Quarter: 2025Q2

REPORT INFORMATION
  Report Type: Report from Study
  Country: CA (occurrence: CA)
  Receive Date: 20250521
  Receipt Date: 20250521
  Transmission Date: 20250717
  Serious: Yes (Other)
  Sender: ABBVIE
  Company Number: CA-ABBVIE-6056517

PATIENT
  Age: 74 Year
  Sex: Male

DRUGS (9)
  1. VYALEV [Suspect]
     Active Substance: FOSCARBIDOPA\FOSLEVODOPA
     Indication: Product used for unknown indication
     Route: 058
     Dates: start: 20240502
  2. CARBIDOPA AND LEVODOPA [Concomitant]
     Active Substance: CARBIDOPA\LEVODOPA
     Indication: Product used for unknown indication
     Dosage: 100/25 2 TABS
  3. ENTACAPONE [Concomitant]
     Active Substance: ENTACAPONE
     Indication: Product used for unknown indication
     Route: 065
  4. ENTACAPONE [Concomitant]
     Active Substance: ENTACAPONE
     Indication: Product used for unknown indication
     Route: 065
  5. XARELTO [Concomitant]
     Active Substance: RIVAROXABAN
     Indication: Product used for unknown indication
  6. TRAZODONE [Concomitant]
     Active Substance: TRAZODONE HYDROCHLORIDE
     Indication: Product used for unknown indication
  7. LORAZEPAM [Concomitant]
     Active Substance: LORAZEPAM
     Indication: Product used for unknown indication
  8. CLONAZEPAM [Concomitant]
     Active Substance: CLONAZEPAM
     Indication: Product used for unknown indication
  9. Nutro [Concomitant]
     Indication: Product used for unknown indication
     Dosage: PATCH

REACTIONS (35)
  - Deep vein thrombosis [Unknown]
  - Device power source issue [Unknown]
  - Nightmare [Unknown]
  - Dry skin [Unknown]
  - Parkinson^s disease [Unknown]
  - Hyperkinesia [Not Recovered/Not Resolved]
  - Mobility decreased [Recovering/Resolving]
  - Neuropathy peripheral [Not Recovered/Not Resolved]
  - Catheter site haemorrhage [Unknown]
  - Rash [Recovered/Resolved]
  - Rash papular [Recovered/Resolved]
  - Rash vesicular [Recovered/Resolved]
  - Asthenia [Not Recovered/Not Resolved]
  - Infection [Not Recovered/Not Resolved]
  - Rash macular [Not Recovered/Not Resolved]
  - Rash pruritic [Not Recovered/Not Resolved]
  - Skin warm [Recovered/Resolved]
  - Unevaluable event [Not Recovered/Not Resolved]
  - Device issue [Unknown]
  - Device connection issue [Unknown]
  - Limb discomfort [Unknown]
  - Rash [Recovered/Resolved]
  - Device occlusion [Unknown]
  - Device kink [Unknown]
  - Catheter site induration [Unknown]
  - Catheter site infection [Recovered/Resolved]
  - Umbilical erythema [Unknown]
  - Nodule [Unknown]
  - Skin warm [Unknown]
  - Colon cancer stage 0 [Unknown]
  - Dyspepsia [Unknown]
  - Hypercholesterolaemia [Unknown]
  - Hypertension [Unknown]
  - Restless legs syndrome [Unknown]
  - Benign prostatic hyperplasia [Unknown]

NARRATIVE: CASE EVENT DATE: 20241204
